FAERS Safety Report 5134716-9 (Version None)
Quarter: 2006Q4

REPORT INFORMATION
  Report Type: 
  Country: None (occurrence: None)
  Receive Date: 20061019
  Receipt Date: 20061005
  Transmission Date: 20070319
  Serious: Yes (Hospitalization)
  Sender: FDA-Public Use
  Company Number: CLOF-10324

PATIENT
  Age: 49 Year
  Sex: Male
  Weight: 94.7 kg

DRUGS (7)
  1. CLOFARABINE [Suspect]
     Indication: ACUTE LYMPHOCYTIC LEUKAEMIA
     Dosage: 86 MG QD X 5 IV
     Route: 042
     Dates: start: 20060101
  2. CYTARABINE [Suspect]
     Indication: ACUTE LYMPHOCYTIC LEUKAEMIA
     Dosage: 4320 MG QD X 5
     Dates: start: 20060101
  3. VANCOMYCIN [Concomitant]
  4. LEVAQUIN [Concomitant]
  5. ZYRTEC [Concomitant]
  6. FLUCONAZOLE [Concomitant]
  7. NORVASC [Concomitant]

REACTIONS (18)
  - ALOPECIA [None]
  - BODY TEMPERATURE INCREASED [None]
  - CONVULSION [None]
  - DIABETES MELLITUS [None]
  - FACIAL BONES FRACTURE [None]
  - FALL [None]
  - HYPOVOLAEMIA [None]
  - NAUSEA [None]
  - NERVOUSNESS [None]
  - PANCYTOPENIA [None]
  - RASH [None]
  - RESPIRATORY RATE INCREASED [None]
  - SINUS DISORDER [None]
  - SYNCOPE VASOVAGAL [None]
  - TACHYCARDIA [None]
  - TONIC CLONIC MOVEMENTS [None]
  - TREMOR [None]
  - VOMITING [None]
